FAERS Safety Report 16702488 (Version 2)
Quarter: 2019Q3

REPORT INFORMATION
  Report Type: Spontaneous
  Country: US (occurrence: US)
  Receive Date: 20190814
  Receipt Date: 20190906
  Transmission Date: 20191004
  Serious: No
  Sender: FDA-Public Use
  Company Number: US-HORIZON-PEN-0745-2019

PATIENT
  Age: 77 Year
  Sex: Female

DRUGS (4)
  1. PENNSAID [Suspect]
     Active Substance: DICLOFENAC SODIUM
     Indication: ARTHRALGIA
     Dosage: 1 SAMPLE PACKET ONCE A DAY
     Dates: start: 20190627, end: 20190630
  2. VOLTAREN [Concomitant]
     Active Substance: DICLOFENAC SODIUM
  3. HEMPVANA [Concomitant]
  4. ARTHARREST [Concomitant]

REACTIONS (3)
  - Drug ineffective [Unknown]
  - Off label use [Unknown]
  - Intentional product use issue [Unknown]

NARRATIVE: CASE EVENT DATE: 20190627
